FAERS Safety Report 10601053 (Version 3)
Quarter: 2014Q4

REPORT INFORMATION
  Report Type: Report from Study
  Country: US (occurrence: US)
  Receive Date: 20141124
  Receipt Date: 20141201
  Transmission Date: 20150529
  Serious: Yes (Hospitalization)
  Sender: FDA-Public Use
  Company Number: US-JNJFOC-20141000276

PATIENT
  Age: 78 Year
  Sex: Male
  Weight: 109 kg

DRUGS (14)
  1. LIPITOR [Concomitant]
     Active Substance: ATORVASTATIN CALCIUM
     Indication: HYPERCHOLESTEROLAEMIA
     Route: 065
     Dates: start: 200401
  2. CELEBREX [Concomitant]
     Active Substance: CELECOXIB
     Indication: ARTHRALGIA
     Route: 065
     Dates: start: 200506
  3. AGGRENOX [Concomitant]
     Active Substance: ASPIRIN\DIPYRIDAMOLE
     Indication: ANTIPLATELET THERAPY
     Route: 065
     Dates: start: 200808
  4. VENLAFAXINE [Concomitant]
     Active Substance: VENLAFAXINE HYDROCHLORIDE
     Indication: HOT FLUSH
     Route: 065
     Dates: start: 20121218
  5. METHADONE [Concomitant]
     Active Substance: METHADONE HYDROCHLORIDE
     Indication: BACK PAIN
     Route: 065
     Dates: start: 200808
  6. JANUMET [Concomitant]
     Active Substance: METFORMIN HYDROCHLORIDE\SITAGLIPTIN PHOSPHATE
     Indication: DIABETES MELLITUS
     Route: 065
     Dates: start: 200706
  7. TORSEMIDE. [Concomitant]
     Active Substance: TORSEMIDE
     Indication: HYPERTENSION
     Route: 065
     Dates: start: 20120417
  8. ABIRATERONE ACETATE [Suspect]
     Active Substance: ABIRATERONE ACETATE
     Indication: PROSTATE CANCER METASTATIC
     Route: 048
     Dates: start: 20120312
  9. PREDNISONE. [Suspect]
     Active Substance: PREDNISONE
     Indication: PROSTATE CANCER METASTATIC
     Route: 048
     Dates: start: 20120312
  10. CLONIDINE PATCH [Concomitant]
     Indication: HYPERHIDROSIS
     Route: 065
     Dates: start: 201108
  11. VITAMIN D3 [Concomitant]
     Active Substance: CHOLECALCIFEROL
     Indication: VITAMIN SUPPLEMENTATION
     Route: 065
     Dates: start: 20130629
  12. ZOLADEX [Concomitant]
     Active Substance: GOSERELIN ACETATE
     Indication: HORMONE THERAPY
     Route: 030
     Dates: start: 20101110
  13. HYDROCODONE [Concomitant]
     Active Substance: HYDROCODONE
     Indication: BACK PAIN
     Route: 065
     Dates: start: 200808
  14. ABIRATERONE ACETATE [Suspect]
     Active Substance: ABIRATERONE ACETATE
     Route: 048

REACTIONS (1)
  - Myocardial infarction [Recovered/Resolved]

NARRATIVE: CASE EVENT DATE: 20140925
